FAERS Safety Report 25368105 (Version 1)
Quarter: 2025Q2

REPORT INFORMATION
  Report Type: Spontaneous
  Country: CN (occurrence: CN)
  Receive Date: 20250528
  Receipt Date: 20250528
  Transmission Date: 20250717
  Serious: Yes (Other)
  Sender: NOVARTIS
  Company Number: CN-002147023-NVSC2025CN083456

PATIENT
  Sex: Female

DRUGS (1)
  1. SECUKINUMAB [Suspect]
     Active Substance: SECUKINUMAB
     Indication: Product used for unknown indication
     Route: 065

REACTIONS (3)
  - Premature delivery [Unknown]
  - Normal newborn [Unknown]
  - Maternal exposure during pregnancy [Unknown]
